FAERS Safety Report 14928528 (Version 2)
Quarter: 2018Q2

REPORT INFORMATION
  Report Type: Spontaneous
  Country: SK (occurrence: SK)
  Receive Date: 20180523
  Receipt Date: 20180611
  Transmission Date: 20180711
  Serious: Yes (Death, Other)
  Sender: FDA-Public Use
  Company Number: SK-CELGENEUS-SVK-20180503500

PATIENT
  Age: 72 Year
  Sex: Male
  Weight: 78 kg

DRUGS (3)
  1. IBALGIN [Concomitant]
     Active Substance: IBUPROFEN
     Indication: ARTHRALGIA
     Route: 065
  2. AZACITIDINE. [Suspect]
     Active Substance: AZACITIDINE
     Indication: MYELODYSPLASTIC SYNDROME
     Route: 041
  3. ERYTHROCYTE CONCENTRATES [Concomitant]
     Indication: PRODUCT USED FOR UNKNOWN INDICATION
     Route: 065

REACTIONS (10)
  - Skin reaction [Unknown]
  - Thrombocytopenia [Unknown]
  - Transformation to acute myeloid leukaemia [Fatal]
  - White blood cell count decreased [Unknown]
  - Drug ineffective [Unknown]
  - Pigmentation disorder [Unknown]
  - Anaemia [Unknown]
  - Sepsis [Unknown]
  - Cardiac failure [Unknown]
  - Infection [Unknown]
